FAERS Safety Report 8535666-8 (Version None)
Quarter: 2012Q3

REPORT INFORMATION
  Report Type: 
  Country: None (occurrence: None)
  Receive Date: 20120725
  Receipt Date: 20120723
  Transmission Date: 20120928
  Serious: No
  Sender: FDA-Public Use
  Company Number: US-PFIZER INC-2012152693

PATIENT
  Sex: Female
  Weight: 51.701 kg

DRUGS (7)
  1. SEROQUEL [Concomitant]
     Indication: SLEEP DISORDER
     Dosage: UNK
  2. AMBIEN [Concomitant]
     Dosage: UNK
  3. LAMOTRIGINE [Concomitant]
     Dosage: 200 MG, 1X/DAY
  4. OXAZEPAM [Concomitant]
     Dosage: 30 MG, 2X/DAY
  5. PRISTIQ [Suspect]
     Indication: DEPRESSION
     Dosage: 50 MG, 1X/DAY
     Route: 048
     Dates: start: 20110101, end: 20110101
  6. PRISTIQ [Suspect]
     Dosage: 100 MG, 1X/DAY
     Route: 048
     Dates: start: 20110101
  7. ZOLOFT [Concomitant]
     Indication: ANXIETY
     Dosage: 100 MG, 1X/DAY

REACTIONS (3)
  - MEDICATION RESIDUE [None]
  - FLATULENCE [None]
  - DRUG INEFFECTIVE [None]
